FAERS Safety Report 7803666 (Version 3)
Quarter: 2012Q4

REPORT INFORMATION
  Report Type: 
  Country: BR (occurrence: BR)
  Receive Date: 20110208
  Receipt Date: 20121016
  Transmission Date: 20130627
  Serious: Yes (Hospitalization, Disabling, Other)
  Sender: FDA-Public Use
  Company Number: BR-BAYER-201014858LA

PATIENT
  Age: 44 Year
  Sex: Female

DRUGS (8)
  1. BETAFERON [Suspect]
     Indication: RELAPSING-REMITTING MULTIPLE SCLEROSIS
     Dosage: 8 miu, QOD
     Route: 058
     Dates: end: 201204
  2. BETAFERON [Suspect]
     Indication: RELAPSING-REMITTING MULTIPLE SCLEROSIS
     Dosage: 9.6 miu, UNK
     Route: 058
     Dates: start: 199911
  3. YAZ [Suspect]
     Indication: PREMENSTRUAL SYNDROME
     Dosage: UNK
     Route: 048
     Dates: start: 200810
  4. AMITRIPTYLINE [Concomitant]
     Indication: DEPRESSION
     Dosage: 75 mg, QD
     Route: 048
     Dates: start: 1999
  5. LIORESAL [Concomitant]
     Indication: MUSCLE SPASTICITY
     Dosage: 10 mg, TID
     Route: 048
     Dates: start: 2008
  6. NITROFURANTOIN [Concomitant]
     Indication: URINARY RETENTION
     Dosage: 100 mg, QD
     Route: 048
     Dates: start: 2002
  7. OMEPRAZOL [Concomitant]
     Indication: PROPHYLAXIS
     Dosage: 40 mg, QD
     Route: 048
     Dates: start: 201008
  8. NITROFURANTOIN [Concomitant]

REACTIONS (24)
  - Multiple sclerosis relapse [Recovered/Resolved]
  - Multiple sclerosis relapse [Recovered/Resolved]
  - Optic neuritis [Recovered/Resolved]
  - Blindness [Recovered/Resolved]
  - Muscle spasticity [Recovered/Resolved with Sequelae]
  - Depression [Not Recovered/Not Resolved]
  - Multiple sclerosis relapse [Not Recovered/Not Resolved]
  - Muscular weakness [Not Recovered/Not Resolved]
  - Visual acuity reduced [Not Recovered/Not Resolved]
  - Spinal column injury [Not Recovered/Not Resolved]
  - Multiple sclerosis [Recovering/Resolving]
  - Bone pain [Recovering/Resolving]
  - Spinal pain [Recovering/Resolving]
  - Musculoskeletal pain [Recovering/Resolving]
  - Gait disturbance [Recovering/Resolving]
  - Multiple sclerosis [Recovered/Resolved]
  - Vision blurred [Recovered/Resolved]
  - Headache [Not Recovered/Not Resolved]
  - Fractured coccyx [Not Recovered/Not Resolved]
  - Hospitalisation [Unknown]
  - Urinary tract infection [Not Recovered/Not Resolved]
  - Anaemia [Recovering/Resolving]
  - Multiple sclerosis [Not Recovered/Not Resolved]
  - Neuromyelitis optica [Not Recovered/Not Resolved]
